FAERS Safety Report 7792553-0 (Version None)
Quarter: 2011Q4

REPORT INFORMATION
  Report Type: 
  Country: None (occurrence: None)
  Receive Date: 20111003
  Receipt Date: 20110922
  Transmission Date: 20120403
  Serious: Yes (Other)
  Sender: FDA-Public Use
  Company Number: US-CELGENEUS-163-21880-11092916

PATIENT
  Sex: Female
  Weight: 72.64 kg

DRUGS (10)
  1. CYCLOBENZAPRINE [Concomitant]
     Route: 065
  2. NEXIUM [Concomitant]
     Route: 065
  3. ZOLPIDEM [Concomitant]
     Route: 065
  4. ZOFRAN [Concomitant]
     Route: 065
  5. VELCADE [Concomitant]
     Route: 065
  6. REVLIMID [Suspect]
     Dosage: 15 MILLIGRAM
     Route: 048
     Dates: start: 20110101, end: 20110706
  7. REVLIMID [Suspect]
     Indication: AMYLOIDOSIS
     Dosage: 15 MILLIGRAM
     Route: 048
     Dates: start: 20110501, end: 20110515
  8. METHOCARBAMOL [Concomitant]
     Route: 065
  9. REVLIMID [Suspect]
     Dosage: 15 MILLIGRAM
     Route: 048
     Dates: start: 20110826
  10. BACTRIM [Concomitant]
     Route: 065

REACTIONS (2)
  - PNEUMONIA [None]
  - ARTHROPATHY [None]
